FAERS Safety Report 7735365-6 (Version None)
Quarter: 2011Q3

REPORT INFORMATION
  Report Type: 
  Country: None (occurrence: None)
  Receive Date: 20110907
  Receipt Date: 20110824
  Transmission Date: 20111222
  Serious: Yes (Other)
  Sender: FDA-Public Use
  Company Number: US-CELGENEUS-163-21880-11082786

PATIENT
  Sex: Female

DRUGS (9)
  1. TYLENOL-500 [Concomitant]
     Route: 065
  2. CALCIUM CARBONATE [Concomitant]
     Route: 065
  3. REVLIMID [Suspect]
     Dosage: 25 MILLIGRAM
     Route: 048
     Dates: start: 20110505
  4. BENADRYL [Concomitant]
     Route: 065
  5. ASCORBIC ACID [Concomitant]
     Route: 065
  6. NEXIUM [Concomitant]
     Route: 065
  7. CARAFATE [Concomitant]
     Route: 065
  8. PERCOCET [Concomitant]
     Route: 065
  9. NORVASC [Concomitant]
     Route: 065

REACTIONS (1)
  - SPINAL CORD DISORDER [None]
